FAERS Safety Report 22873438 (Version 3)
Quarter: 2024Q1

REPORT INFORMATION
  Report Type: Spontaneous
  Country: JP (occurrence: JP)
  Receive Date: 20230828
  Receipt Date: 20240206
  Transmission Date: 20240410
  Serious: Yes (Life-Threatening, Other)
  Sender: FDA-Public Use
  Company Number: JP-ASTELLAS-2023JP005374

PATIENT
  Age: 56 Year
  Sex: Male

DRUGS (14)
  1. METHYLPREDNISOLONE SODIUM SUCCINATE [Suspect]
     Active Substance: METHYLPREDNISOLONE SODIUM SUCCINATE
     Indication: Haemophagocytic lymphohistiocytosis
     Dosage: 80 MG, 1X/DAY
     Route: 042
     Dates: start: 2014, end: 2014
  2. METHYLPREDNISOLONE SODIUM SUCCINATE [Suspect]
     Active Substance: METHYLPREDNISOLONE SODIUM SUCCINATE
     Indication: Vasculitis
     Dosage: PULSED MPSL THERAPY
     Dates: start: 2016
  3. INFLIXIMAB [Suspect]
     Active Substance: INFLIXIMAB
     Indication: Rheumatoid arthritis
     Dosage: UNK
     Dates: start: 2014, end: 2014
  4. METHOTREXATE SODIUM [Suspect]
     Active Substance: METHOTREXATE SODIUM
     Indication: Rheumatoid arthritis
     Dosage: LOW-DOSE, WEEKLY
     Dates: start: 2013, end: 2014
  5. BETAMETHASONE [Suspect]
     Active Substance: BETAMETHASONE\BETAMETHASONE DIPROPIONATE
     Indication: Vasculitis
     Dosage: LONG-TERM, MODERATE-DOSE, ORAL BETAMETHASONE GREATER THAN 3-4 MG/DAY
     Route: 048
     Dates: start: 2016
  6. TACROLIMUS [Suspect]
     Active Substance: TACROLIMUS
     Indication: Acute febrile neutrophilic dermatosis
     Dosage: UNK
     Dates: start: 2014
  7. TACROLIMUS [Suspect]
     Active Substance: TACROLIMUS
     Indication: Rheumatoid arthritis
  8. TOCILIZUMAB [Suspect]
     Active Substance: TOCILIZUMAB
     Indication: Acute febrile neutrophilic dermatosis
     Dosage: UNK
     Dates: start: 2014, end: 2015
  9. PREDNISOLONE [Suspect]
     Active Substance: PREDNISOLONE
     Indication: Haemophagocytic lymphohistiocytosis
     Dosage: HIGH-DOSE
     Route: 048
     Dates: start: 2014, end: 2014
  10. PREDNISOLONE [Suspect]
     Active Substance: PREDNISOLONE
     Indication: Acute febrile neutrophilic dermatosis
     Dosage: 20 MG, 1X/DAY
     Route: 048
     Dates: start: 2014
  11. PREDNISOLONE [Suspect]
     Active Substance: PREDNISOLONE
     Dosage: GLUCOCORTICOID TAPERING
     Route: 048
     Dates: start: 2014, end: 2014
  12. PREDNISOLONE [Suspect]
     Active Substance: PREDNISOLONE
     Dosage: 60 MG, 1X/DAY
     Route: 042
     Dates: start: 2017
  13. DAPSONE [Concomitant]
     Active Substance: DAPSONE
     Indication: Acute febrile neutrophilic dermatosis
     Dosage: UNK
     Dates: start: 2014, end: 2015
  14. CYCLOSPORINE [Concomitant]
     Active Substance: CYCLOSPORINE
     Indication: Haemophagocytic lymphohistiocytosis
     Route: 042

REACTIONS (2)
  - Epstein-Barr virus infection reactivation [Recovering/Resolving]
  - Haemophagocytic lymphohistiocytosis [Recovering/Resolving]

NARRATIVE: CASE EVENT DATE: 20170101
